FAERS Safety Report 19479285 (Version 1)
Quarter: 2021Q2

REPORT INFORMATION
  Report Type: Spontaneous
  Country: US (occurrence: US)
  Receive Date: 20210630
  Receipt Date: 20210630
  Transmission Date: 20210717
  Serious: No
  Sender: FDA-Public Use
  Company Number: US-BIODELIVERY SCIENCES INTERNATIONAL-2020BDSI0680

PATIENT
  Age: 66 Year
  Sex: Male
  Weight: 143.01 kg

DRUGS (7)
  1. BUPRENORPHINE. [Suspect]
     Active Substance: BUPRENORPHINE
     Route: 002
     Dates: start: 202007, end: 20201106
  2. BUPRENORPHINE. [Suspect]
     Active Substance: BUPRENORPHINE
     Route: 002
     Dates: start: 202006, end: 202007
  3. PARACETAMOL [Concomitant]
     Active Substance: ACETAMINOPHEN
     Indication: PAIN
     Route: 048
  4. BUPRENORPHINE. [Suspect]
     Active Substance: BUPRENORPHINE
     Indication: PAIN
     Route: 002
     Dates: start: 202005, end: 202006
  5. IBUPROFEN. [Concomitant]
     Active Substance: IBUPROFEN
     Indication: PAIN
     Route: 048
  6. NO DRUG NAME [Concomitant]
     Active Substance: UNSPECIFIED INGREDIENT
     Indication: LIMB INJURY
     Dosage: UNKNOWN, UNKNOWN
     Dates: start: 2020
  7. BUPRENORPHINE. [Suspect]
     Active Substance: BUPRENORPHINE
     Dosage: ONE FILM OF 300 MCG AND ONE FILM OF 450 MCG; TWICE A DAY
     Route: 002
     Dates: start: 20201106

REACTIONS (16)
  - Tendonitis [Not Recovered/Not Resolved]
  - Product adhesion issue [Unknown]
  - Limb injury [Unknown]
  - Drug ineffective [Unknown]
  - Product availability issue [Unknown]
  - Radiculopathy [Not Recovered/Not Resolved]
  - Fall [Recovered/Resolved]
  - Insomnia [Not Recovered/Not Resolved]
  - Product physical consistency issue [Unknown]
  - Product solubility abnormal [Unknown]
  - Wrong technique in product usage process [Recovered/Resolved]
  - Incorrect route of product administration [Recovered/Resolved]
  - Rotator cuff syndrome [Not Recovered/Not Resolved]
  - Therapeutic response decreased [Unknown]
  - Oral administration complication [Unknown]
  - Dental restoration failure [Not Recovered/Not Resolved]

NARRATIVE: CASE EVENT DATE: 2020
